FAERS Safety Report 11850339 (Version 1)
Quarter: 2015Q4

REPORT INFORMATION
  Report Type: Spontaneous
  Country: US (occurrence: US)
  Receive Date: 20151218
  Receipt Date: 20151218
  Transmission Date: 20160305
  Serious: No
  Sender: FDA-Public Use
  Company Number: US-JNJFOC-20151117250

PATIENT
  Age: 71 Year
  Sex: Female
  Weight: 92.99 kg

DRUGS (1)
  1. TYLENOL 8 HR ARTHRITIS PAIN [Suspect]
     Active Substance: ACETAMINOPHEN
     Indication: ARTHRALGIA
     Dosage: 1 CAPLET, 1X (ONCE)
     Route: 048

REACTIONS (2)
  - Product packaging issue [Unknown]
  - Inappropriate schedule of drug administration [Unknown]
